FAERS Safety Report 7149371-6 (Version None)
Quarter: 2010Q4

REPORT INFORMATION
  Report Type: 
  Country: None (occurrence: None)
  Receive Date: 20101209
  Receipt Date: 20100916
  Transmission Date: 20110411
  Serious: No
  Sender: FDA-Public Use
  Company Number: US-KINGPHARMUSA00001-K201001155

PATIENT
  Age: 65 Year
  Sex: Male
  Weight: 111.57 kg

DRUGS (3)
  1. EMBEDA [Suspect]
     Indication: BACK PAIN
     Dosage: 60 MG (TOOK 2 DOSES, 12 HOURS APART)
     Route: 048
     Dates: start: 20100913, end: 20100913
  2. XANAX [Concomitant]
     Indication: INSOMNIA
  3. ANTIHYPERTENSIVES [Concomitant]
     Indication: HYPERTENSION

REACTIONS (4)
  - CRYING [None]
  - NAUSEA [None]
  - VISION BLURRED [None]
  - VOMITING [None]
